FAERS Safety Report 16206191 (Version 2)
Quarter: 2019Q2

REPORT INFORMATION
  Report Type: Spontaneous
  Country: AU (occurrence: AU)
  Receive Date: 20190417
  Receipt Date: 20190626
  Transmission Date: 20190711
  Serious: Yes (Other)
  Sender: FDA-Public Use
  Company Number: AU-BEH-2019101369

PATIENT
  Age: 62 Year
  Sex: Male
  Weight: 85 kg

DRUGS (5)
  1. NORMAL SALINE [Concomitant]
     Active Substance: SODIUM CHLORIDE
     Route: 042
  2. PRIVIGEN [Suspect]
     Active Substance: HUMAN IMMUNOGLOBULIN G
     Indication: IMMUNE THROMBOCYTOPENIC PURPURA
     Dosage: 425 ML, UNK
     Route: 065
     Dates: start: 20190401
  3. INTRAGAM P [Concomitant]
     Active Substance: HUMAN IMMUNOGLOBULIN G
     Dosage: UNK
     Route: 065
     Dates: start: 20190401
  4. PRIVIGEN [Suspect]
     Active Substance: HUMAN IMMUNOGLOBULIN G
     Indication: LYMPHOMA
  5. PRIVIGEN [Suspect]
     Active Substance: HUMAN IMMUNOGLOBULIN G
     Indication: HAEMORRHAGE

REACTIONS (4)
  - Chills [Recovered/Resolved]
  - Pyrexia [Not Recovered/Not Resolved]
  - Oxygen saturation decreased [Recovered/Resolved]
  - Respiratory rate increased [Recovered/Resolved]

NARRATIVE: CASE EVENT DATE: 20190401
